FAERS Safety Report 10090428 (Version 1)
Quarter: 2014Q2

REPORT INFORMATION
  Report Type: Report from Study
  Country: US (occurrence: US)
  Receive Date: 20140421
  Receipt Date: 20140421
  Transmission Date: 20141212
  Serious: Yes (Other)
  Sender: FDA-Public Use
  Company Number: US-BAXTER-2014BAX018788

PATIENT
  Sex: 0

DRUGS (2)
  1. ADVATE [Suspect]
     Indication: FACTOR VIII DEFICIENCY
     Route: 042
  2. ADVATE [Suspect]
     Indication: PROPHYLAXIS

REACTIONS (3)
  - Factor VIII inhibition [Unknown]
  - Bacterial infection [Unknown]
  - Arthropathy [Unknown]
